FAERS Safety Report 7775362-8 (Version None)
Quarter: 2011Q3

REPORT INFORMATION
  Report Type: 
  Country: None (occurrence: None)
  Receive Date: 20110923
  Receipt Date: 20110916
  Transmission Date: 20111222
  Serious: Yes (Other)
  Sender: FDA-Public Use
  Company Number: PHHY2010US70019

PATIENT
  Sex: Male

DRUGS (1)
  1. EXJADE [Suspect]
     Dosage: 1000 MG, QD
     Route: 048

REACTIONS (6)
  - ASTHENIA [None]
  - SKIN IRRITATION [None]
  - VISUAL IMPAIRMENT [None]
  - PRURITUS [None]
  - HEARING IMPAIRED [None]
  - DIARRHOEA [None]
